FAERS Safety Report 4698901-2 (Version None)
Quarter: 2005Q2

REPORT INFORMATION
  Report Type: 
  Country: None (occurrence: None)
  Receive Date: 20050624
  Receipt Date: 20050620
  Transmission Date: 20051028
  Serious: Yes (Death)
  Sender: FDA-Public Use
  Company Number: JP-BOEHRINGER INGELHEIM PHARMACEUTICALS, INC.-2005-BP-10422NB

PATIENT
  Age: 69 Year
  Sex: Female

DRUGS (3)
  1. BI-SIFROL TABLETS [Suspect]
     Indication: PARKINSONISM
     Route: 048
     Dates: start: 20050512, end: 20050609
  2. TOLEDOMIN [Concomitant]
     Indication: DEPRESSION
     Route: 048
     Dates: start: 20040808, end: 20050609
  3. AMOXAN [Concomitant]
     Indication: DEPRESSION
     Route: 048
     Dates: start: 20050527, end: 20050609

REACTIONS (1)
  - CARDIAC FAILURE [None]
